FAERS Safety Report 16549442 (Version 2)
Quarter: 2019Q3

REPORT INFORMATION
  Report Type: Spontaneous
  Country: US (occurrence: US)
  Receive Date: 20190710
  Receipt Date: 20190720
  Transmission Date: 20191004
  Serious: No
  Sender: FDA-Public Use
  Company Number: US-JNJFOC-20190633480

PATIENT
  Sex: Female
  Weight: 55.84 kg

DRUGS (1)
  1. WOMENS ROGAINE UNSCENTED [Suspect]
     Active Substance: MINOXIDIL
     Indication: ALOPECIA
     Dosage: ONE TABLESPOON
     Route: 061

REACTIONS (6)
  - Product formulation issue [Unknown]
  - Product storage error [Recovered/Resolved]
  - Incorrect dose administered [Recovered/Resolved]
  - Palpitations [Recovered/Resolved]
  - Expired product administered [Recovered/Resolved]
  - Inappropriate schedule of product administration [Recovered/Resolved]
